FAERS Safety Report 6720174-7 (Version None)
Quarter: 2010Q2

REPORT INFORMATION
  Report Type: 
  Country: None (occurrence: None)
  Receive Date: 20100507
  Receipt Date: 20100427
  Transmission Date: 20101027
  Serious: Yes (Other)
  Sender: FDA-Public Use
  Company Number: BO650963A

PATIENT
  Age: 43 Year
  Sex: Female

DRUGS (4)
  1. MELPHALAN HYDROCHLORIDE [Suspect]
     Indication: NON-HODGKIN'S LYMPHOMA
     Dosage: 50 MG/M2 INTRAVENOUS
     Route: 042
  2. MYLERAN [Suspect]
     Indication: NON-HODGKIN'S LYMPHOMA
     Dosage: 130 MG/M2 INTRAVENOUS
     Route: 042
  3. THIOTEPA [Suspect]
     Indication: NON-HODGKIN'S LYMPHOMA
     Dosage: 250 MG/M2 INTRAVENOUS
     Route: 042
  4. STEM CELL TRANSPLANT [Concomitant]

REACTIONS (3)
  - DRUG TOXICITY [None]
  - GASTROINTESTINAL TOXICITY [None]
  - MUCOSAL INFLAMMATION [None]
